FAERS Safety Report 7797996-7 (Version None)
Quarter: 2011Q4

REPORT INFORMATION
  Report Type: 
  Country: None (occurrence: None)
  Receive Date: 20111005
  Receipt Date: 20110928
  Transmission Date: 20120403
  Serious: Yes (Other)
  Sender: FDA-Public Use
  Company Number: JP-GLAXOSMITHKLINE-B0752067A

PATIENT
  Sex: Male

DRUGS (3)
  1. FLUTICASONE PROPIONATE/SALMETEROL [Suspect]
     Indication: ASTHMA
     Dosage: 500MCG PER DAY
     Route: 055
     Dates: start: 20071126
  2. MONTELUKAST SODIUM [Concomitant]
     Route: 048
     Dates: start: 20071126
  3. DEPAS [Concomitant]
     Indication: INSOMNIA
     Dosage: .5MG PER DAY
     Route: 048
     Dates: start: 20071126

REACTIONS (4)
  - ASTHMA [None]
  - FEELING ABNORMAL [None]
  - MOOD ALTERED [None]
  - PRODUCT QUALITY ISSUE [None]
